FAERS Safety Report 13017171 (Version 1)
Quarter: 2016Q4

REPORT INFORMATION
  Report Type: Spontaneous
  Country: CN (occurrence: CN)
  Receive Date: 20161212
  Receipt Date: 20161212
  Transmission Date: 20170207
  Serious: Yes (Hospitalization)
  Sender: FDA-Public Use
  Company Number: CN-UNICHEM LABORATORIES LIMITED-UCM201612-000278

PATIENT

DRUGS (2)
  1. DIVALPROEX SODIUM. [Suspect]
     Active Substance: DIVALPROEX SODIUM
  2. OXCARBAZEPINE. [Suspect]
     Active Substance: OXCARBAZEPINE

REACTIONS (4)
  - Neonatal pneumonia [Unknown]
  - Hypoxic-ischaemic encephalopathy [Unknown]
  - Foetal exposure during pregnancy [Unknown]
  - Neonatal asphyxia [Unknown]
